FAERS Safety Report 25589950 (Version 1)
Quarter: 2025Q3

REPORT INFORMATION
  Report Type: Report from Study
  Country: EU (occurrence: EU)
  Receive Date: 20250722
  Receipt Date: 20250722
  Transmission Date: 20251021
  Serious: Yes (Hospitalization)
  Sender: MYLAN
  Company Number: EU-MYLANLABS-2025M1056617

PATIENT
  Age: 45 Year
  Sex: Female

DRUGS (16)
  1. ACETAMINOPHEN [Suspect]
     Active Substance: ACETAMINOPHEN
     Indication: Sciatica
  2. ACETAMINOPHEN [Suspect]
     Active Substance: ACETAMINOPHEN
     Route: 065
  3. ACETAMINOPHEN [Suspect]
     Active Substance: ACETAMINOPHEN
     Route: 065
  4. ACETAMINOPHEN [Suspect]
     Active Substance: ACETAMINOPHEN
  5. METAMIZOLE [Suspect]
     Active Substance: METAMIZOLE
     Indication: Sciatica
  6. METAMIZOLE [Suspect]
     Active Substance: METAMIZOLE
     Route: 065
  7. METAMIZOLE [Suspect]
     Active Substance: METAMIZOLE
     Route: 065
  8. METAMIZOLE [Suspect]
     Active Substance: METAMIZOLE
  9. FENTANYL [Suspect]
     Active Substance: FENTANYL
     Indication: Sciatica
  10. FENTANYL [Suspect]
     Active Substance: FENTANYL
     Route: 065
  11. FENTANYL [Suspect]
     Active Substance: FENTANYL
     Route: 065
  12. FENTANYL [Suspect]
     Active Substance: FENTANYL
  13. AMITRIPTYLINE [Suspect]
     Active Substance: AMITRIPTYLINE
     Indication: Sciatica
  14. AMITRIPTYLINE [Suspect]
     Active Substance: AMITRIPTYLINE
     Route: 065
  15. AMITRIPTYLINE [Suspect]
     Active Substance: AMITRIPTYLINE
     Route: 065
  16. AMITRIPTYLINE [Suspect]
     Active Substance: AMITRIPTYLINE

REACTIONS (8)
  - Pain [Unknown]
  - Limb discomfort [Unknown]
  - Oedema peripheral [Unknown]
  - Skin discolouration [Unknown]
  - Neuralgia [Unknown]
  - Allodynia [Unknown]
  - Peripheral nerve lesion [Unknown]
  - Nerve injury [Unknown]
